FAERS Safety Report 8365428-6 (Version None)
Quarter: 2012Q2

REPORT INFORMATION
  Report Type: 
  Country: None (occurrence: None)
  Receive Date: 20120516
  Receipt Date: 20120508
  Transmission Date: 20120825
  Serious: Yes (Hospitalization, Other)
  Sender: FDA-Public Use
  Company Number: US-CELGENEUS-163-20785-12042117

PATIENT
  Sex: Female
  Weight: 81.72 kg

DRUGS (14)
  1. METFORMIN HCL [Concomitant]
     Route: 065
  2. POTASSIUM CHLORIDE [Concomitant]
     Dosage: 20 MILLIEQUIVALENTS
     Route: 048
  3. HYDROCHLOROTHIAZIDE [Concomitant]
     Dosage: 50 MILLIGRAM
     Route: 048
  4. LEVETIRACETAM [Concomitant]
     Dosage: 500 MILLIGRAM
     Route: 048
  5. THALOMID [Suspect]
     Indication: MULTIPLE MYELOMA
     Dosage: 50 MILLIGRAM
     Route: 048
     Dates: start: 20100201
  6. KLONOPIN [Concomitant]
     Dosage: .5 MILLIGRAM
     Route: 048
  7. GLYBURIDE [Concomitant]
     Route: 065
  8. NORCO [Concomitant]
     Dosage: 7.5/325MG
     Route: 048
  9. TOPIRAMATE [Concomitant]
     Dosage: 25 MILLIGRAM
     Route: 048
  10. THALOMID [Suspect]
     Dosage: 50 MILLIGRAM
     Route: 048
     Dates: start: 20100412
  11. DYAZIDE [Concomitant]
     Route: 065
  12. GLIPIZIDE [Concomitant]
     Dosage: 2.5 MILLIGRAM
     Route: 048
  13. THALOMID [Suspect]
     Dosage: 50 MILLIGRAM
     Route: 048
     Dates: start: 20120401
  14. ALLOPURINOL [Concomitant]
     Dosage: 100 MILLIGRAM
     Route: 048

REACTIONS (5)
  - DELIRIUM [None]
  - FEMUR FRACTURE [None]
  - PNEUMONIA [None]
  - RENAL FAILURE ACUTE [None]
  - FALL [None]
